FAERS Safety Report 18334943 (Version 1)
Quarter: 2020Q4

REPORT INFORMATION
  Report Type: Spontaneous
  Country: US (occurrence: US)
  Receive Date: 20201001
  Receipt Date: 20201001
  Transmission Date: 20210113
  Serious: Yes (Other)
  Sender: FDA-Public Use
  Company Number: US-MSNLABS-2020MSNLIT00373

PATIENT
  Age: 49 Year
  Sex: Male

DRUGS (6)
  1. TERIFLUNOMIDE TABLETS 14 MG [Suspect]
     Active Substance: TERIFLUNOMIDE
     Indication: RELAPSING-REMITTING MULTIPLE SCLEROSIS
     Route: 065
     Dates: start: 201801
  2. TERIFLUNOMIDE TABLETS 14 MG [Suspect]
     Active Substance: TERIFLUNOMIDE
     Dosage: REDUCED
     Route: 065
     Dates: start: 201812, end: 201909
  3. OMEPRAZOLE. [Interacting]
     Active Substance: OMEPRAZOLE
     Indication: GASTROINTESTINAL DISORDER
     Route: 065
  4. USTEKINUMAB [Interacting]
     Active Substance: USTEKINUMAB
     Indication: CROHN^S DISEASE
     Route: 065
  5. AZATHIOPRINE. [Interacting]
     Active Substance: AZATHIOPRINE
     Indication: CROHN^S DISEASE
     Route: 065
  6. VEDOLIZUMAB [Interacting]
     Active Substance: VEDOLIZUMAB
     Indication: CROHN^S DISEASE
     Route: 065
     Dates: start: 201911

REACTIONS (1)
  - Crohn^s disease [Unknown]

NARRATIVE: CASE EVENT DATE: 201910
